FAERS Safety Report 6341105-8 (Version None)
Quarter: 2009Q3

REPORT INFORMATION
  Report Type: 
  Country: None (occurrence: None)
  Receive Date: 20090904
  Receipt Date: 20090827
  Transmission Date: 20100115
  Serious: Yes (Life-Threatening)
  Sender: FDA-Public Use
  Company Number: B0591426A

PATIENT
  Age: 85 Year
  Sex: Female

DRUGS (5)
  1. DILATREND [Suspect]
     Indication: DRUG USE FOR UNKNOWN INDICATION
     Dosage: 6.25MG PER DAY
     Route: 065
  2. SINTROM [Suspect]
     Indication: DRUG USE FOR UNKNOWN INDICATION
     Route: 065
  3. SERETIDE [Concomitant]
  4. SPIRIVA [Concomitant]
  5. LISINOPRIL [Concomitant]

REACTIONS (2)
  - BRADYCARDIA [None]
  - COAGULATION TIME PROLONGED [None]
